FAERS Safety Report 9961297 (Version 1)
Quarter: 2014Q1

REPORT INFORMATION
  Report Type: Spontaneous
  Country: IT (occurrence: IT)
  Receive Date: 20140305
  Receipt Date: 20140305
  Transmission Date: 20141002
  Serious: Yes (Hospitalization)
  Sender: FDA-Public Use
  Company Number: IT-UCBSA-113721

PATIENT
  Age: 6 Year
  Sex: Female

DRUGS (1)
  1. XYZAL [Suspect]
     Dosage: STRENGTH: 5MG/ML, 32 DROPS AFTER HAVING TAKEN OTHER 7 DROPS
     Route: 048
     Dates: start: 20130502, end: 20130502

REACTIONS (1)
  - Overdose [Recovered/Resolved]
